FAERS Safety Report 22106654 (Version 2)
Quarter: 2023Q2

REPORT INFORMATION
  Report Type: Spontaneous
  Country: US (occurrence: US)
  Receive Date: 20230317
  Receipt Date: 20230403
  Transmission Date: 20230722
  Serious: No
  Sender: FDA-Public Use
  Company Number: US-SA-SAC20230309001360

PATIENT
  Sex: Male

DRUGS (1)
  1. DUPIXENT [Suspect]
     Active Substance: DUPILUMAB
     Dosage: 300 MG, OTHER
     Route: 058
     Dates: start: 202209

REACTIONS (8)
  - Epicondylitis [Unknown]
  - Tendonitis [Unknown]
  - Dry skin [Unknown]
  - Skin irritation [Unknown]
  - Back pain [Unknown]
  - Musculoskeletal stiffness [Not Recovered/Not Resolved]
  - Erythema [Unknown]
  - Therapeutic product effect incomplete [Unknown]
